FAERS Safety Report 9381981 (Version 2)
Quarter: 2013Q3

REPORT INFORMATION
  Report Type: Spontaneous
  Country: TW (occurrence: TW)
  Receive Date: 20130703
  Receipt Date: 20130711
  Transmission Date: 20140515
  Serious: No
  Sender: FDA-Public Use
  Company Number: TW-B.I. PHARMACEUTICALS,INC./RIDGEFIELD-2013-BI-18884RF

PATIENT
  Sex: 0

DRUGS (6)
  1. TRAJENTA [Suspect]
     Indication: TYPE 2 DIABETES MELLITUS
     Dosage: 5 MG
     Route: 048
     Dates: start: 20130612, end: 20130613
  2. TRAJENTA [Suspect]
     Dosage: 2.5 MG
     Route: 048
     Dates: start: 20130614, end: 20130615
  3. BENZBROMARONE [Concomitant]
     Dosage: 50 MG
  4. LOSARTAN [Concomitant]
     Dosage: 50 MG
  5. FENOFIBRATE [Concomitant]
     Dosage: 160 MG
  6. AMARYL [Concomitant]

REACTIONS (1)
  - Eyelid oedema [Recovered/Resolved]
